FAERS Safety Report 14528187 (Version 1)
Quarter: 2018Q1

REPORT INFORMATION
  Report Type: Spontaneous
  Country: CA (occurrence: CA)
  Receive Date: 20180214
  Receipt Date: 20180214
  Transmission Date: 20180509
  Serious: Yes (Hospitalization)
  Sender: FDA-Public Use
  Company Number: CA-ROCHE-2067325

PATIENT
  Age: 59 Year
  Sex: Male

DRUGS (20)
  1. PERINDOPRIL [Concomitant]
     Active Substance: PERINDOPRIL
  2. PARIET [Concomitant]
     Active Substance: RABEPRAZOLE SODIUM
  3. ONDANSETRON [Concomitant]
     Active Substance: ONDANSETRON
  4. NIFEDIPINE. [Concomitant]
     Active Substance: NIFEDIPINE
  5. BENDAMUSTINE [Suspect]
     Active Substance: BENDAMUSTINE
     Indication: B-CELL LYMPHOMA
     Route: 042
  6. RITUXAN [Suspect]
     Active Substance: RITUXIMAB
     Indication: B-CELL LYMPHOMA
     Route: 042
  7. METOCLOPRAMIDE. [Concomitant]
     Active Substance: METOCLOPRAMIDE
  8. DIPHENHYDRAMINE. [Concomitant]
     Active Substance: DIPHENHYDRAMINE
  9. DEXAMETHASONE. [Concomitant]
     Active Substance: DEXAMETHASONE
  10. RANITIDINE. [Concomitant]
     Active Substance: RANITIDINE
  11. BECLOMETHASONE [Concomitant]
     Active Substance: BECLOMETHASONE
  12. TYLENOL [Concomitant]
     Active Substance: ACETAMINOPHEN
  13. IMODIUM [Concomitant]
     Active Substance: LOPERAMIDE HYDROCHLORIDE
  14. GABAPENTINE [Concomitant]
     Active Substance: GABAPENTIN
  15. VENETOCLAX. [Suspect]
     Active Substance: VENETOCLAX
     Indication: B-CELL LYMPHOMA
     Route: 048
  16. CODEINE [Concomitant]
     Active Substance: CODEINE
  17. CITALOPRAM [Concomitant]
     Active Substance: CITALOPRAM HYDROBROMIDE
  18. HYDROCORTISONE. [Concomitant]
     Active Substance: HYDROCORTISONE
  19. BISOPROLOL [Concomitant]
     Active Substance: BISOPROLOL
  20. AMOXICILLINE [Concomitant]
     Active Substance: AMOXICILLIN

REACTIONS (1)
  - Dizziness [Unknown]
